FAERS Safety Report 12180396 (Version 1)
Quarter: 2016Q1

REPORT INFORMATION
  Report Type: Spontaneous
  Country: FR (occurrence: FR)
  Receive Date: 20160315
  Receipt Date: 20160315
  Transmission Date: 20160526
  Serious: Yes (Life-Threatening, Hospitalization, Other)
  Sender: FDA-Public Use
  Company Number: FR-BAXTER-2016BAX010732

PATIENT
  Age: 48 Year
  Sex: Female

DRUGS (9)
  1. EPIRUBICINE [Suspect]
     Active Substance: EPIRUBICIN
     Indication: INVASIVE DUCTAL BREAST CARCINOMA
     Dosage: 1 CYCLE; CYCLE 1 OF FEC 100
     Route: 042
     Dates: start: 20150828
  2. FLUOROURACIL. [Suspect]
     Active Substance: FLUOROURACIL
     Indication: INVASIVE DUCTAL BREAST CARCINOMA
     Dosage: 1 CYCLE; CYCLE 1 OF FEC 100
     Route: 042
     Dates: start: 20150828
  3. ENDOXAN 1000 MG, POUDRE POUR SOLUTION INJECTABLE [Suspect]
     Active Substance: CYCLOPHOSPHAMIDE
     Indication: INVASIVE DUCTAL BREAST CARCINOMA
     Dosage: 1 CYCLE; CYCLE 1 OF FEC 100
     Route: 042
     Dates: start: 20150828
  4. EPIRUBICINE [Suspect]
     Active Substance: EPIRUBICIN
     Dosage: 1 CYCLE; CYCLE 2 OF FEC 100
     Route: 042
     Dates: start: 20150918, end: 20150918
  5. TAXOTERE [Suspect]
     Active Substance: DOCETAXEL
     Indication: INVASIVE DUCTAL BREAST CARCINOMA
     Dosage: 3 (UNITS NOT REPORTED)
     Route: 065
     Dates: start: 20150828
  6. METHYLPREDNISOLONE. [Concomitant]
     Active Substance: METHYLPREDNISOLONE
     Indication: PRODUCT USED FOR UNKNOWN INDICATION
     Route: 065
  7. ZOPHREN [Concomitant]
     Active Substance: ONDANSETRON
     Indication: PRODUCT USED FOR UNKNOWN INDICATION
     Route: 065
  8. FLUOROURACIL. [Suspect]
     Active Substance: FLUOROURACIL
     Dosage: 1 CYCLE; CYCLE 2 OF FEC 100
     Route: 042
     Dates: start: 20150918, end: 20150918
  9. ENDOXAN 1000 MG, POUDRE POUR SOLUTION INJECTABLE [Suspect]
     Active Substance: CYCLOPHOSPHAMIDE
     Dosage: 1 CYCLE; CYCLE 2 OF FEC 100
     Route: 042
     Dates: start: 20150918, end: 20150919

REACTIONS (12)
  - Febrile bone marrow aplasia [Recovered/Resolved]
  - Decreased appetite [Unknown]
  - Pneumonia klebsiella [Unknown]
  - Stomatitis [Recovered/Resolved]
  - Acute kidney injury [Recovering/Resolving]
  - Jugular vein thrombosis [Unknown]
  - Klebsiella sepsis [Unknown]
  - Pneumonia staphylococcal [Unknown]
  - Coma [Recovering/Resolving]
  - Pneumocystis jirovecii pneumonia [Unknown]
  - Pneumonia bacterial [Unknown]
  - Condition aggravated [Recovering/Resolving]

NARRATIVE: CASE EVENT DATE: 20150925
